FAERS Safety Report 7337152-X (Version None)
Quarter: 2011Q1

REPORT INFORMATION
  Report Type: 
  Country: None (occurrence: None)
  Receive Date: 20110308
  Receipt Date: 20110228
  Transmission Date: 20110831
  Serious: Yes (Other)
  Sender: FDA-Public Use
  Company Number: US-PFIZER INC-2010181518

PATIENT
  Age: 32 Year
  Sex: Female

DRUGS (9)
  1. RAPAMUNE [Suspect]
     Dosage: 8 MG, 1X/DAY
     Route: 048
     Dates: start: 20101208, end: 20101212
  2. RAPAMUNE [Suspect]
     Dosage: 13 MG, 1X/DAY
     Route: 048
     Dates: start: 20101204, end: 20101204
  3. RAPAMUNE [Suspect]
     Dosage: 5 MG, 1X/DAY
     Route: 048
     Dates: start: 20101213, end: 20101214
  4. RAPAMUNE [Suspect]
     Dosage: 7 MG, 1X/DAY
     Route: 048
     Dates: start: 20101205, end: 20101205
  5. ACETYLSALICYLIC ACID [Concomitant]
     Indication: THROMBOSIS PROPHYLAXIS
     Dosage: 81 MG, 1X/DAY
     Dates: start: 20101204, end: 20101205
  6. RAPAMUNE [Suspect]
     Indication: PANCREAS ISLET CELL TRANSPLANT
     Dosage: 26 MG, 1X/DAY
     Route: 048
     Dates: start: 20101203
  7. PRAVASTATIN [Concomitant]
     Indication: PROPHYLAXIS AGAINST TRANSPLANT REJECTION
     Dosage: 20 MG, 1X/DAY
     Dates: start: 20101202, end: 20101204
  8. RAPAMUNE [Suspect]
     Dosage: 13 MG, 1X/DAY
     Route: 048
     Dates: start: 20101206, end: 20101207
  9. BACTRIM [Concomitant]
     Indication: PROPHYLAXIS AGAINST TRANSPLANT REJECTION
     Dosage: 1 TABLET, 3X/ WEEK
     Dates: start: 20101203, end: 20101205

REACTIONS (2)
  - ALANINE AMINOTRANSFERASE INCREASED [None]
  - ASPARTATE AMINOTRANSFERASE INCREASED [None]
